FAERS Safety Report 16932174 (Version 1)
Quarter: 2019Q4

REPORT INFORMATION
  Report Type: Spontaneous
  Country: US (occurrence: US)
  Receive Date: 20191017
  Receipt Date: 20191017
  Transmission Date: 20200122
  Serious: Yes (Other)
  Sender: FDA-Public Use
  Company Number: US-NOVOPROD-690165

PATIENT
  Sex: Male

DRUGS (2)
  1. NOVOLOG [Suspect]
     Active Substance: INSULIN ASPART
     Indication: TYPE 1 DIABETES MELLITUS
     Dosage: 1 TO 12 UNITS FOR CORRECTION
     Route: 058
     Dates: start: 2014
  2. TRESIBA [Suspect]
     Active Substance: INSULIN DEGLUDEC
     Indication: TYPE 1 DIABETES MELLITUS
     Dosage: 55 IU, QD
     Route: 058
     Dates: start: 201902

REACTIONS (4)
  - Blood glucose decreased [Unknown]
  - Blindness [Unknown]
  - Visual impairment [Unknown]
  - Hyperglycaemia [Unknown]
